FAERS Safety Report 16420954 (Version 1)
Quarter: 2019Q2

REPORT INFORMATION
  Report Type: Spontaneous
  Country: US (occurrence: US)
  Receive Date: 20190611
  Receipt Date: 20190611
  Transmission Date: 20190711
  Serious: Yes (Hospitalization)
  Sender: FDA-Public Use
  Company Number: None

PATIENT
  Sex: Male

DRUGS (2)
  1. SOMATULINE [Suspect]
     Active Substance: LANREOTIDE ACETATE
     Indication: HYPOTHALAMO-PITUITARY DISORDER
  2. SOMATULINE [Suspect]
     Active Substance: LANREOTIDE ACETATE
     Indication: ACROMEGALY

REACTIONS (1)
  - Surgery [None]
